FAERS Safety Report 25180435 (Version 3)
Quarter: 2025Q2

REPORT INFORMATION
  Report Type: Report from Study
  Country: NL (occurrence: NL)
  Receive Date: 20250409
  Receipt Date: 20250429
  Transmission Date: 20250716
  Serious: Yes (Hospitalization, Other)
  Sender: TEVA
  Company Number: NL-TEVA-VS-3318912

PATIENT
  Age: 49 Year
  Sex: Female

DRUGS (1)
  1. COPAXONE [Suspect]
     Active Substance: GLATIRAMER ACETATE
     Indication: Relapsing multiple sclerosis
     Route: 058
     Dates: start: 202501

REACTIONS (9)
  - Fracture [Unknown]
  - Injection site reaction [Unknown]
  - Anxiety [Unknown]
  - Head discomfort [Recovered/Resolved]
  - Surgery [Unknown]
  - Throat tightness [Recovered/Resolved]
  - Daydreaming [Unknown]
  - Hyperhidrosis [Recovered/Resolved]
  - Immediate post-injection reaction [Unknown]

NARRATIVE: CASE EVENT DATE: 20250101
